FAERS Safety Report 11988447 (Version 3)
Quarter: 2016Q1

REPORT INFORMATION
  Report Type: Spontaneous
  Country: FR (occurrence: FR)
  Receive Date: 20160202
  Receipt Date: 20160316
  Transmission Date: 20160526
  Serious: Yes (Hospitalization, Other)
  Sender: FDA-Public Use
  Company Number: FR-AMGEN-FRASP2016009919

PATIENT
  Age: 69 Year
  Sex: Female

DRUGS (6)
  1. BEVACIZUMAB [Concomitant]
     Active Substance: BEVACIZUMAB
     Dosage: 22025 MG, UNK
     Dates: start: 201212, end: 201406
  2. XGEVA [Suspect]
     Active Substance: DENOSUMAB
     Indication: PRODUCT USED FOR UNKNOWN INDICATION
     Dosage: 120 MG, Q4WK
     Route: 058
     Dates: start: 20130329, end: 201502
  3. GEMCITABINE [Concomitant]
     Active Substance: GEMCITABINE\GEMCITABINE HYDROCHLORIDE
     Dosage: 7500 MG, UNK
     Dates: start: 201510, end: 20151223
  4. PACLITAXEL. [Concomitant]
     Active Substance: PACLITAXEL
     Dosage: 1722 MG, UNK
     Dates: start: 201211, end: 201305
  5. PAMIDRONATE [Concomitant]
     Active Substance: PAMIDRONATE DISODIUM
     Dosage: 90 MG, QMO
     Route: 042
     Dates: start: 20121116, end: 201303
  6. ERIBULIN [Concomitant]
     Active Substance: ERIBULIN
     Dosage: 44 MG, UNK
     Dates: start: 201502, end: 201510

REACTIONS (1)
  - Osteonecrosis of jaw [Not Recovered/Not Resolved]

NARRATIVE: CASE EVENT DATE: 201412
